FAERS Safety Report 4452408-6 (Version None)
Quarter: 2004Q3

REPORT INFORMATION
  Report Type: 
  Country: None (occurrence: None)
  Receive Date: 20040917
  Receipt Date: 20040910
  Transmission Date: 20050211
  Serious: Yes (Hospitalization)
  Sender: FDA-Public Use
  Company Number: PHBS2004FI11953

PATIENT
  Age: 93 Year
  Sex: Female

DRUGS (7)
  1. EXELON [Suspect]
     Indication: DEMENTIA
     Dosage: 6 MG/D
     Route: 048
     Dates: start: 20040715, end: 20040812
  2. FURESIS [Concomitant]
     Indication: HYPERTENSION
     Dosage: 20 MG/D
     Route: 048
     Dates: end: 20040902
  3. THYROXIN [Concomitant]
     Indication: HYPOTHYROIDISM
     Route: 065
     Dates: end: 20040902
  4. ASASANTIN [Concomitant]
     Indication: ARTERIOSCLEROSIS
     Route: 065
     Dates: end: 20040902
  5. PARA-TABS [Concomitant]
     Indication: PAIN
     Dosage: 500 MG, TID
     Dates: end: 20040812
  6. ZOLOFT [Concomitant]
     Indication: DEPRESSION
     Route: 065
     Dates: start: 20040501, end: 20040812
  7. KALLIPOS D [Concomitant]
     Indication: OSTEOPOROSIS
     Dosage: 2 TABLETS/D
     Route: 048
     Dates: start: 20040701

REACTIONS (9)
  - ALANINE AMINOTRANSFERASE INCREASED [None]
  - ASPARTATE AMINOTRANSFERASE INCREASED [None]
  - BLOOD AMYLASE DECREASED [None]
  - BLOOD BILIRUBIN INCREASED [None]
  - GAMMA-GLUTAMYLTRANSFERASE INCREASED [None]
  - HEPATITIS [None]
  - JAUNDICE [None]
  - LEUKOPENIA [None]
  - PLATELET COUNT DECREASED [None]
